FAERS Safety Report 5066620-9 (Version None)
Quarter: 2006Q3

REPORT INFORMATION
  Report Type: 
  Country: None (occurrence: None)
  Receive Date: 20060726
  Receipt Date: 20060714
  Transmission Date: 20061208
  Serious: Yes (Other)
  Sender: FDA-Public Use
  Company Number: 2004110378

PATIENT
  Sex: Female
  Weight: 140.6151 kg

DRUGS (18)
  1. NEURONTIN [Suspect]
     Indication: MENTAL DISORDER
     Dosage: (300 MG, UNKNOWN), UNKNOWN
  2. NEURONTIN [Suspect]
     Indication: NEUROPATHY
     Dosage: (300 MG, UNKNOWN), UNKNOWN
  3. NEXIUM [Concomitant]
  4. LEVAQUIN [Concomitant]
  5. ZOLOFT [Concomitant]
  6. ALTACE [Concomitant]
  7. FUROSEMIDE [Concomitant]
  8. GLUCOTROL XL [Concomitant]
  9. SEROQUEL [Concomitant]
  10. HYDROCODONE BITARTRATE + ACETAMINOPHEN [Concomitant]
  11. ACETAMINOPHEN [Concomitant]
  12. ZYRTEC [Concomitant]
  13. CARBAMAZEPINE [Concomitant]
  14. LIPITOR [Concomitant]
  15. POTASSIUM (POTASSIUM) [Concomitant]
  16. SENNA (SENNA) [Concomitant]
  17. ULTRACET [Concomitant]
  18. DOXYCYCLINE [Concomitant]

REACTIONS (9)
  - BLINDNESS UNILATERAL [None]
  - BLOOD CHOLESTEROL ABNORMAL [None]
  - CEREBROVASCULAR ACCIDENT [None]
  - CONVULSION [None]
  - DIABETES MELLITUS [None]
  - DRUG DOSE OMISSION [None]
  - NEUROPATHY [None]
  - OCULAR SARCOIDOSIS [None]
  - OEDEMA PERIPHERAL [None]
